FAERS Safety Report 10907147 (Version 1)
Quarter: 2015Q1

REPORT INFORMATION
  Report Type: Spontaneous
  Country: US (occurrence: None)
  Receive Date: 20150309
  Receipt Date: 20150309
  Transmission Date: 20150721
  Serious: Yes (Life-Threatening)
  Sender: FDA-Public Use
  Company Number: None

PATIENT
  Age: 75 Year
  Sex: Female

DRUGS (1)
  1. EFFIENT [Suspect]
     Active Substance: PRASUGREL HYDROCHLORIDE

REACTIONS (6)
  - Gastrointestinal haemorrhage [None]
  - Cardiac disorder [None]
  - Pneumonia [None]
  - Emotional distress [None]
  - Intestinal ischaemia [None]
  - Abdominal pain [None]

NARRATIVE: CASE EVENT DATE: 20150110
